FAERS Safety Report 6272765-8 (Version None)
Quarter: 2009Q3

REPORT INFORMATION
  Report Type: 
  Country: None (occurrence: None)
  Receive Date: 20090716
  Receipt Date: 20090716
  Transmission Date: 20100115
  Serious: Yes (Disabling, Other)
  Sender: FDA-Public Use
  Company Number: None

PATIENT

DRUGS (5)
  1. DIOVAN [Suspect]
     Indication: HYPERTENSION
     Dosage: ONE QD MOUTH
     Route: 048
     Dates: start: 20081201, end: 20090401
  2. AMLODIPINE [Concomitant]
  3. HYDROCHLOROTHIAZIDE [Concomitant]
  4. ASCORBIC ACID [Concomitant]
  5. SENTRY SENCOR [Concomitant]

REACTIONS (3)
  - DIPLOPIA [None]
  - GAIT DISTURBANCE [None]
  - RHABDOMYOLYSIS [None]
